FAERS Safety Report 6070265-1 (Version None)
Quarter: 2009Q1

REPORT INFORMATION
  Report Type: 
  Country: None (occurrence: None)
  Receive Date: 20090203
  Receipt Date: 20090112
  Transmission Date: 20090719
  Serious: Yes (Other)
  Sender: FDA-Public Use
  Company Number: 2009S1000532

PATIENT
  Age: 53 Year
  Sex: Male

DRUGS (4)
  1. CARBOPLATIN [Suspect]
     Indication: ADENOCARCINOMA
     Dates: start: 20070101
  2. PACLITAXEL [Suspect]
     Indication: ADENOCARCINOMA
     Dates: start: 20070101
  3. ERLOTINIB (ERLOTINIB) [Suspect]
     Indication: ADENOCARCINOMA
     Dosage: 150 MG
  4. CYCLOSPORINE [Suspect]
     Indication: IMMUNOSUPPRESSION
     Dates: start: 20020201

REACTIONS (3)
  - DIARRHOEA [None]
  - DRUG LEVEL DECREASED [None]
  - NEUTROPENIA [None]
